FAERS Safety Report 7206695-1 (Version None)
Quarter: 2011Q1

REPORT INFORMATION
  Report Type: 
  Country: None (occurrence: None)
  Receive Date: 20110103
  Receipt Date: 20101230
  Transmission Date: 20110831
  Serious: Yes (Other)
  Sender: FDA-Public Use
  Company Number: US-PFIZER INC-2010181948

PATIENT
  Sex: Female
  Weight: 82 kg

DRUGS (10)
  1. SOTALOL [Suspect]
     Dosage: UNK
     Dates: start: 20081001, end: 20081001
  2. FUROSEMIDE [Concomitant]
     Indication: FLUID RETENTION
  3. LISINOPRIL [Concomitant]
     Indication: BLOOD PRESSURE
  4. LORAZEPAM [Concomitant]
     Indication: ANXIETY
     Dosage: UNK
  5. TIKOSYN [Suspect]
     Indication: ATRIAL FIBRILLATION
     Dosage: 500 UG, 2X/DAY
     Route: 048
     Dates: start: 20081001
  6. LISINOPRIL [Concomitant]
     Indication: HEART RATE ABNORMAL
     Dosage: UNK
  7. FUROSEMIDE [Concomitant]
     Indication: BLOOD PRESSURE
     Dosage: UNK
  8. WARFARIN [Suspect]
     Indication: ANTICOAGULANT THERAPY
     Dosage: UNK
     Dates: start: 20080901, end: 20080101
  9. COUMADIN [Suspect]
     Dosage: 5 MG, 1X/DAY
     Route: 048
     Dates: start: 20080101
  10. POTASSIUM [Concomitant]
     Indication: BLOOD POTASSIUM DECREASED
     Dosage: UNK

REACTIONS (5)
  - RASH [None]
  - DYSPNOEA [None]
  - PRURITUS [None]
  - ATRIAL FIBRILLATION [None]
  - REACTION TO COLOURING [None]
